FAERS Safety Report 10451587 (Version 1)
Quarter: 2014Q3

REPORT INFORMATION
  Report Type: Spontaneous
  Country: US (occurrence: US)
  Receive Date: 20140914
  Receipt Date: 20140914
  Transmission Date: 20150326
  Serious: Yes (Hospitalization, Other)
  Sender: FDA-Public Use
  Company Number: US-B.I. PHARMACEUTICALS,INC./RIDGEFIELD-2014-BI-42701BP

PATIENT
  Age: 69 Year
  Sex: Female

DRUGS (1)
  1. PRADAXA [Suspect]
     Active Substance: DABIGATRAN ETEXILATE MESYLATE
     Indication: ATRIAL FIBRILLATION
     Route: 065
     Dates: start: 20121220, end: 20121223

REACTIONS (12)
  - Mental status changes [Recovered/Resolved]
  - Cardiac arrest [Recovered/Resolved]
  - Anaemia [Unknown]
  - Lactic acidosis [Recovered/Resolved]
  - Epistaxis [Unknown]
  - Ventricular tachycardia [Unknown]
  - Hepatic failure [Recovered/Resolved]
  - Gastrointestinal haemorrhage [Recovered/Resolved]
  - Coagulopathy [Unknown]
  - Hypothermia [Unknown]
  - Shock [Recovered/Resolved]
  - Ischaemic hepatitis [Not Recovered/Not Resolved]

NARRATIVE: CASE EVENT DATE: 20121223
